FAERS Safety Report 19862200 (Version 1)
Quarter: 2021Q3

REPORT INFORMATION
  Report Type: Report from Study
  Country: None (occurrence: FR)
  Receive Date: 20210920
  Receipt Date: 20210920
  Transmission Date: 20211014
  Serious: Yes (Death, Hospitalization)
  Sender: FDA-Public Use
  Company Number: FR-ABBVIE-21K-056-4084589-00

PATIENT
  Age: 56 Year
  Sex: Male
  Weight: 66 kg

DRUGS (38)
  1. CLOBEX [Concomitant]
     Active Substance: CLOBETASOL PROPIONATE
     Indication: PRODUCT USED FOR UNKNOWN INDICATION
     Dates: start: 20200715
  2. BACTRIM [Concomitant]
     Active Substance: SULFAMETHOXAZOLE\TRIMETHOPRIM
     Indication: PRODUCT USED FOR UNKNOWN INDICATION
     Dates: start: 20191206
  3. DEXERYL [Concomitant]
     Indication: PRODUCT USED FOR UNKNOWN INDICATION
     Dates: start: 20200903
  4. PRIMPERAN [Concomitant]
     Active Substance: METOCLOPRAMIDE HYDROCHLORIDE
     Indication: PRODUCT USED FOR UNKNOWN INDICATION
     Dates: start: 20201127
  5. FLIXABI [Suspect]
     Active Substance: INFLIXIMAB
     Indication: PSORIASIS
     Route: 042
     Dates: start: 20190912, end: 2019
  6. COSENTYX [Concomitant]
     Active Substance: SECUKINUMAB
     Indication: PSORIASIS
     Route: 058
     Dates: start: 20180926, end: 2018
  7. OTEZLA [Concomitant]
     Active Substance: APREMILAST
     Indication: PSORIASIS
     Route: 048
     Dates: start: 20201126, end: 20201126
  8. RIFADINE [Concomitant]
     Active Substance: RIFAMPIN
     Indication: PRODUCT USED FOR UNKNOWN INDICATION
     Dates: start: 20200611
  9. ATARAX [Concomitant]
     Active Substance: HYDROXYZINE HYDROCHLORIDE
     Indication: PRODUCT USED FOR UNKNOWN INDICATION
     Dates: start: 20201119
  10. OTEZLA [Concomitant]
     Active Substance: APREMILAST
     Route: 048
     Dates: start: 20201128, end: 20201128
  11. OTEZLA [Concomitant]
     Active Substance: APREMILAST
     Route: 048
     Dates: start: 20201129, end: 20201129
  12. HUMIRA [Suspect]
     Active Substance: ADALIMUMAB
     Route: 058
     Dates: start: 20150216
  13. FLIXABI [Suspect]
     Active Substance: INFLIXIMAB
     Route: 042
     Dates: start: 20191115
  14. OTEZLA [Concomitant]
     Active Substance: APREMILAST
     Route: 048
     Dates: start: 20201128, end: 20201128
  15. OTEZLA [Concomitant]
     Active Substance: APREMILAST
     Route: 048
     Dates: start: 20201130, end: 20201130
  16. CRESTOR [Concomitant]
     Active Substance: ROSUVASTATIN CALCIUM
     Indication: PRODUCT USED FOR UNKNOWN INDICATION
  17. RIFINAH [Concomitant]
     Active Substance: ISONIAZID\RIFAMPIN
     Indication: PRODUCT USED FOR UNKNOWN INDICATION
     Dates: start: 20200311
  18. DIPROSALIC [Concomitant]
     Active Substance: BETAMETHASONE DIPROPIONATE
     Indication: PRODUCT USED FOR UNKNOWN INDICATION
     Dates: start: 20200903
  19. HUMIRA [Suspect]
     Active Substance: ADALIMUMAB
     Indication: PSORIASIS
     Route: 058
     Dates: start: 20150202, end: 201502
  20. TREMFYA [Concomitant]
     Active Substance: GUSELKUMAB
     Indication: PSORIASIS
     Route: 058
     Dates: start: 20190401
  21. OTEZLA [Concomitant]
     Active Substance: APREMILAST
     Route: 048
     Dates: start: 20201127, end: 20201127
  22. FLIXABI [Suspect]
     Active Substance: INFLIXIMAB
     Route: 042
     Dates: start: 20210201, end: 202102
  23. COSENTYX [Concomitant]
     Active Substance: SECUKINUMAB
     Route: 058
     Dates: start: 20181024
  24. OTEZLA [Concomitant]
     Active Substance: APREMILAST
     Route: 048
     Dates: start: 20201130, end: 20201130
  25. TICAGRELOR. [Concomitant]
     Active Substance: TICAGRELOR
     Indication: PRODUCT USED FOR UNKNOWN INDICATION
     Dates: start: 20181222
  26. CORTANCYL [Concomitant]
     Active Substance: PREDNISONE
     Indication: PRODUCT USED FOR UNKNOWN INDICATION
     Dates: start: 20200306
  27. BRILIQUE [Concomitant]
     Active Substance: TICAGRELOR
     Indication: PRODUCT USED FOR UNKNOWN INDICATION
     Dates: start: 2020
  28. RESITUNE [Concomitant]
     Active Substance: ASPIRIN
     Indication: PRODUCT USED FOR UNKNOWN INDICATION
     Dates: start: 2020
  29. KARDEGIC [Concomitant]
     Active Substance: ASPIRIN DL-LYSINE
     Indication: PRODUCT USED FOR UNKNOWN INDICATION
     Dates: start: 20191222
  30. LANSOPRAZOLE. [Concomitant]
     Active Substance: LANSOPRAZOLE
     Indication: PRODUCT USED FOR UNKNOWN INDICATION
  31. RIFINAH [Concomitant]
     Active Substance: ISONIAZID\RIFAMPIN
     Dates: start: 20210129
  32. FLIXABI [Suspect]
     Active Substance: INFLIXIMAB
     Route: 042
     Dates: start: 20210216
  33. OTEZLA [Concomitant]
     Active Substance: APREMILAST
     Route: 048
     Dates: start: 20201201, end: 20201201
  34. ATORVASTATINE [Concomitant]
     Active Substance: ATORVASTATIN
     Indication: PRODUCT USED FOR UNKNOWN INDICATION
     Dates: start: 20181222
  35. BISOPROLOL [Concomitant]
     Active Substance: BISOPROLOL
     Indication: PRODUCT USED FOR UNKNOWN INDICATION
     Dates: start: 20190420
  36. ESOMEPRAZOLE. [Concomitant]
     Active Substance: ESOMEPRAZOLE MAGNESIUM
     Indication: PRODUCT USED FOR UNKNOWN INDICATION
  37. PRINCI [Concomitant]
     Indication: PRODUCT USED FOR UNKNOWN INDICATION
     Dates: start: 20200611
  38. DIPROSONE [Concomitant]
     Active Substance: BETAMETHASONE DIPROPIONATE
     Indication: PRODUCT USED FOR UNKNOWN INDICATION
     Dates: start: 20200903

REACTIONS (5)
  - Diabetes insipidus [Unknown]
  - Abnormal loss of weight [Unknown]
  - Steroid diabetes [Unknown]
  - COVID-19 [Fatal]
  - Lymph node tuberculosis [Unknown]

NARRATIVE: CASE EVENT DATE: 201912
